FAERS Safety Report 13496921 (Version 1)
Quarter: 2017Q2

REPORT INFORMATION
  Report Type: Report from Study
  Country: AT (occurrence: AT)
  Receive Date: 20170428
  Receipt Date: 20170428
  Transmission Date: 20170830
  Serious: Yes (Other)
  Sender: FDA-Public Use
  Company Number: AT-JNJFOC-20170426645

PATIENT
  Age: 54 Year
  Sex: Female

DRUGS (1)
  1. INFLIXIMAB [Suspect]
     Active Substance: INFLIXIMAB
     Indication: SYSTEMIC LUPUS ERYTHEMATOSUS
     Route: 042

REACTIONS (8)
  - Haematuria [Unknown]
  - Product use in unapproved indication [Unknown]
  - Urinary tract infection [Unknown]
  - Off label use [Unknown]
  - Thrombocytopenia [Recovered/Resolved]
  - Escherichia bacteraemia [Unknown]
  - Double stranded DNA antibody [Unknown]
  - Viral infection [Unknown]
